FAERS Safety Report 11517197 (Version 1)
Quarter: 2015Q3

REPORT INFORMATION
  Report Type: Spontaneous
  Country: US (occurrence: None)
  Receive Date: 20150916
  Receipt Date: 20150916
  Transmission Date: 20151125
  Serious: Yes (Life-Threatening, Hospitalization, Disabling)
  Sender: FDA-Public Use
  Company Number: None

PATIENT
  Age: 17 Year
  Sex: Male

DRUGS (1)
  1. ONFI [Suspect]
     Active Substance: CLOBAZAM
     Indication: SEIZURE
     Dosage: TWICE DAILY TAKEN BY MOUTH
     Route: 048
     Dates: start: 20150107, end: 20150910

REACTIONS (7)
  - Pneumonia [None]
  - Weight decreased [None]
  - Aggression [None]
  - Secretion discharge [None]
  - Seizure [None]
  - Constipation [None]
  - Nail discolouration [None]

NARRATIVE: CASE EVENT DATE: 20150121
